FAERS Safety Report 14486966 (Version 1)
Quarter: 2018Q1

REPORT INFORMATION
  Report Type: Spontaneous
  Country: US (occurrence: US)
  Receive Date: 20180204
  Receipt Date: 20180204
  Transmission Date: 20180509
  Serious: Yes (Life-Threatening)
  Sender: FDA-Public Use
  Company Number: None

PATIENT
  Age: 53 Year
  Sex: Female
  Weight: 103.5 kg

DRUGS (12)
  1. VITAMIN D [Concomitant]
     Active Substance: CHOLECALCIFEROL
  2. TART CHERRY EXTRACT [Concomitant]
  3. BENZALKONIUM CHLORIDE. [Suspect]
     Active Substance: BENZALKONIUM CHLORIDE
     Indication: PRODUCT FORMULATION ISSUE
  4. ALIGN [Concomitant]
     Active Substance: BIFIDOBACTERIUM LONGUM SUBSP. INFANTIS
  5. GABAPENTIN. [Concomitant]
     Active Substance: GABAPENTIN
  6. LORATADINE. [Concomitant]
     Active Substance: LORATADINE
  7. CYCLOBENZAPRENE, 10MG [Concomitant]
     Active Substance: CYCLOBENZAPRINE
  8. LANTUS [Concomitant]
     Active Substance: INSULIN GLARGINE
  9. LISINOPRIL. [Concomitant]
     Active Substance: LISINOPRIL
  10. DOCOSATE SOD [Concomitant]
  11. ZETIA [Concomitant]
     Active Substance: EZETIMIBE
  12. BASAGLAR [Concomitant]
     Active Substance: INSULIN GLARGINE

REACTIONS (5)
  - Vision blurred [None]
  - Loss of consciousness [None]
  - Lacrimation increased [None]
  - Eye irritation [None]
  - Eye discharge [None]
